FAERS Safety Report 7623270-5 (Version None)
Quarter: 2011Q3

REPORT INFORMATION
  Report Type: 
  Country: None (occurrence: None)
  Receive Date: 20110720
  Receipt Date: 20110331
  Transmission Date: 20111222
  Serious: Yes (Hospitalization)
  Sender: FDA-Public Use
  Company Number: PL-ROCHE-693171

PATIENT
  Sex: Female
  Weight: 52 kg

DRUGS (5)
  1. DOCETAXEL [Suspect]
     Dosage: FORM: VIALS, DOSE LEVLE: 75 MG/M2
     Route: 042
     Dates: start: 20100302, end: 20100302
  2. DEXAMETHASONE [Suspect]
     Route: 065
     Dates: start: 20100301, end: 20100303
  3. CARBOPLATIN [Suspect]
     Dosage: FORM: VIALS, DOSE LEVLE: 6 AUC
     Route: 042
     Dates: start: 20100302, end: 20100302
  4. ONDANSETRON [Concomitant]
     Dates: start: 20100302, end: 20100402
  5. TRASTUZUMAB [Suspect]
     Dosage: DOSE LEVEL: 8 MG/KG, FORM: VIALS, LAST DOSE PRIOR TO SAE: 02 MAR 2010
     Route: 042
     Dates: start: 20100302, end: 20100302

REACTIONS (1)
  - DUODENAL ULCER [None]
